FAERS Safety Report 6985035-7 (Version None)
Quarter: 2010Q3

REPORT INFORMATION
  Report Type: 
  Country: None (occurrence: None)
  Receive Date: 20100915
  Receipt Date: 20100903
  Transmission Date: 20110219
  Serious: Yes (Hospitalization)
  Sender: FDA-Public Use
  Company Number: PHHY2010DE59074

PATIENT
  Age: 73 Year
  Sex: Female

DRUGS (7)
  1. LEPONEX [Suspect]
     Indication: DEMENTIA WITH LEWY BODIES
     Dosage: 100 MG, QD
  2. LEPONEX [Suspect]
     Indication: PSYCHOTIC DISORDER
     Dosage: 150 MG, QD
  3. LEPONEX [Suspect]
     Indication: COGNITIVE DISORDER
     Dosage: 200 MG, QD
  4. LEPONEX [Suspect]
     Indication: DELUSION
  5. LEPONEX [Suspect]
     Indication: HALLUCINATION, VISUAL
  6. QUETIAPINE [Suspect]
     Dosage: 125 MG, QD
  7. LEVODOPA [Concomitant]
     Dosage: 375 MG, QD

REACTIONS (12)
  - ANXIETY [None]
  - ASTHENIA [None]
  - COGWHEEL RIGIDITY [None]
  - DELUSION [None]
  - DRUG INEFFECTIVE [None]
  - GAIT DISTURBANCE [None]
  - HALLUCINATION, VISUAL [None]
  - HYPERKINESIA [None]
  - MINI MENTAL STATUS EXAMINATION ABNORMAL [None]
  - NEUROLEPTIC MALIGNANT SYNDROME [None]
  - PARANOIA [None]
  - PLEUROTHOTONUS [None]
